FAERS Safety Report 5449067-2 (Version None)
Quarter: 2007Q3

REPORT INFORMATION
  Report Type: 
  Country: None (occurrence: None)
  Receive Date: 20070911
  Receipt Date: 20070904
  Transmission Date: 20080115
  Serious: Yes (Other)
  Sender: FDA-Public Use
  Company Number: US-JNJFOC-20070900758

PATIENT
  Age: 79 Year
  Sex: Male
  Weight: 65.77 kg

DRUGS (8)
  1. LEVAQUIN [Suspect]
     Indication: CENTRAL LINE INFECTION
     Route: 048
  2. PRIMACOR [Concomitant]
     Indication: CARDIAC DISORDER
     Route: 042
  3. LASIX [Concomitant]
     Indication: DIURETIC THERAPY
     Route: 048
  4. COREG [Concomitant]
     Indication: CARDIAC FAILURE
     Route: 048
  5. METFORMIN HCL [Concomitant]
     Indication: DIABETES MELLITUS
     Route: 048
  6. MEVACOR [Concomitant]
     Indication: BLOOD CHOLESTEROL
     Route: 048
  7. COUMADIN [Concomitant]
     Indication: ANTICOAGULANT THERAPY
     Route: 048
  8. UNKNOWN MEDICATION [Concomitant]
     Indication: CARDIAC DISORDER
     Route: 065

REACTIONS (3)
  - ARTHRALGIA [None]
  - JOINT SWELLING [None]
  - TENDON RUPTURE [None]
